FAERS Safety Report 18063047 (Version 1)
Quarter: 2020Q3

REPORT INFORMATION
  Report Type: Spontaneous
  Country: US (occurrence: US)
  Receive Date: 20200723
  Receipt Date: 20200723
  Transmission Date: 20201103
  Serious: Yes (Other)
  Sender: FDA-Public Use
  Company Number: US-IGSA-SR10010155

PATIENT
  Sex: Male

DRUGS (9)
  1. IBU [Concomitant]
     Active Substance: IBUPROFEN
  2. GABAPENTIN. [Concomitant]
     Active Substance: GABAPENTIN
  3. PENTOXIFYLLIN [Concomitant]
     Active Substance: PENTOXIFYLLINE
  4. GAMUNEX?C [Suspect]
     Active Substance: HUMAN IMMUNOGLOBULIN G
     Dosage: UNK
     Route: 042
     Dates: start: 20190816
  5. GAMUNEX?C [Suspect]
     Active Substance: HUMAN IMMUNOGLOBULIN G
     Dosage: 50 G, Q.M.T.
     Dates: start: 20190627
  6. MESTINON [Concomitant]
     Active Substance: PYRIDOSTIGMINE BROMIDE
  7. AZATHIOPRINE. [Concomitant]
     Active Substance: AZATHIOPRINE
  8. PYRIDOSTIGMINE [Concomitant]
     Active Substance: PYRIDOSTIGMINE
  9. GAMUNEX?C [Suspect]
     Active Substance: HUMAN IMMUNOGLOBULIN G
     Indication: PRODUCT USED FOR UNKNOWN INDICATION
     Dosage: 50 G, Q.M.T.
     Route: 042
     Dates: start: 20190816

REACTIONS (2)
  - Ocular icterus [Unknown]
  - Periorbital oedema [Unknown]

NARRATIVE: CASE EVENT DATE: 20190816
